FAERS Safety Report 18781288 (Version 1)
Quarter: 2021Q1

REPORT INFORMATION
  Report Type: Spontaneous
  Country: MX (occurrence: MX)
  Receive Date: 20210125
  Receipt Date: 20210125
  Transmission Date: 20210419
  Serious: Yes (Other)
  Sender: FDA-Public Use
  Company Number: MX-GLAXOSMITHKLINE-MX2020228797

PATIENT
  Sex: Female

DRUGS (15)
  1. SERETIDE [Suspect]
     Active Substance: FLUTICASONE PROPIONATE\SALMETEROL XINAFOATE
     Indication: PULMONARY HYPERTENSION
     Dosage: UNK
  2. MICCIL [Concomitant]
     Indication: OEDEMA
     Dosage: 1 MG
  3. ATORVASTATIN [Concomitant]
     Active Substance: ATORVASTATIN
     Indication: CARDIAC DISORDER
     Dosage: 20 MG
  4. ONDANSETRON [Concomitant]
     Active Substance: ONDANSETRON
     Indication: NAUSEA
     Dosage: 8 MG
  5. SERETIDE [Suspect]
     Active Substance: FLUTICASONE PROPIONATE\SALMETEROL XINAFOATE
     Indication: PULMONARY HYPERTENSION
     Dosage: UNK, 50/250 ?G
     Dates: start: 2019, end: 202009
  6. PARACETAMOL [Concomitant]
     Active Substance: ACETAMINOPHEN
     Indication: PRODUCT USED FOR UNKNOWN INDICATION
     Dosage: 650 MG, EVERY 8 HOURS
  7. NIFEDIPINO [Concomitant]
     Active Substance: NIFEDIPINE
     Indication: HYPERTENSION
     Dosage: UNK
  8. ASPIRINA PROTECT [Concomitant]
     Active Substance: ASPIRIN
     Indication: MYOCARDIAL INFARCTION
     Dosage: UNK
  9. LOSARTAN. [Concomitant]
     Active Substance: LOSARTAN
     Indication: PRODUCT USED FOR UNKNOWN INDICATION
     Dosage: 50 MG
  10. ALLOPURINOL. [Concomitant]
     Active Substance: ALLOPURINOL
     Indication: BLOOD URIC ACID
     Dosage: UNK
  11. PREGABALINE [Concomitant]
     Active Substance: PREGABALIN
     Indication: OSTEOARTHRITIS
     Dosage: UNK
  12. BEZAFIBRATE [Concomitant]
     Active Substance: BEZAFIBRATE
     Indication: BLOOD TRIGLYCERIDES
     Dosage: 200 MG, EVERY 12 HOURS
  13. TRAMADOL. [Concomitant]
     Active Substance: TRAMADOL
     Indication: ANALGESIC THERAPY
     Dosage: 100 MG
  14. SPIRONOLACTONE. [Concomitant]
     Active Substance: SPIRONOLACTONE
     Indication: DIURETIC THERAPY
     Dosage: UNK
  15. ANASTROZOL [Concomitant]
     Active Substance: ANASTROZOLE
     Indication: BREAST CANCER
     Dosage: 1 MG

REACTIONS (7)
  - Off label use [Unknown]
  - Dyspnoea [Unknown]
  - Diabetes mellitus [Unknown]
  - Product use in unapproved indication [Unknown]
  - Cough [Unknown]
  - Malaise [Unknown]
  - Treatment noncompliance [Unknown]
